FAERS Safety Report 8161330-3 (Version None)
Quarter: 2012Q1

REPORT INFORMATION
  Report Type: 
  Country: None (occurrence: None)
  Receive Date: 20120222
  Receipt Date: 20120222
  Transmission Date: 20120608
  Serious: No
  Sender: FDA-Public Use
  Company Number: None

PATIENT
  Sex: Male
  Weight: 128.41 kg

DRUGS (5)
  1. DEXAMETHASONE [Suspect]
     Dosage: 995 MG
  2. MERCAPTOPURINE [Suspect]
     Dosage: 32545 MG
     Dates: end: 20060605
  3. BACTRIM DS [Suspect]
     Dosage: 800 MG
  4. VINCRISTINE SULFATE [Suspect]
     Dosage: 30 MG
  5. METHOTREXATE [Suspect]
     Dosage: 2495 MG

REACTIONS (1)
  - MYELODYSPLASTIC SYNDROME [None]
